FAERS Safety Report 5161307-6 (Version None)
Quarter: 2006Q4

REPORT INFORMATION
  Report Type: 
  Country: None (occurrence: None)
  Receive Date: 20061130
  Receipt Date: 20061023
  Transmission Date: 20070319
  Serious: No
  Sender: FDA-Public Use
  Company Number: US-BRISTOL-MYERS SQUIBB COMPANY-13551734

PATIENT
  Age: 51 Year
  Sex: Male

DRUGS (2)
  1. ERBITUX [Suspect]
     Indication: NEOPLASM MALIGNANT
     Dates: start: 20061016
  2. CISPLATIN [Concomitant]
     Indication: NEOPLASM MALIGNANT

REACTIONS (1)
  - CHILLS [None]
